FAERS Safety Report 14112593 (Version 1)
Quarter: 2017Q4

REPORT INFORMATION
  Report Type: Report from Study
  Country: None (occurrence: US)
  Receive Date: 20171020
  Receipt Date: 20171020
  Transmission Date: 20180321
  Serious: Yes (Hospitalization)
  Sender: FDA-Public Use
  Company Number: US-ABBVIE-17P-163-2138212-00

PATIENT
  Age: 68 Year
  Sex: Male

DRUGS (5)
  1. VENCLEXTA [Suspect]
     Active Substance: VENETOCLAX
     Indication: CHRONIC LYMPHOCYTIC LEUKAEMIA
     Dosage: 1-2 DAYS
     Route: 048
     Dates: start: 20171011
  2. VENCLEXTA [Suspect]
     Active Substance: VENETOCLAX
     Dosage: DAYS 5-6
     Route: 048
     Dates: start: 201710
  3. VENCLEXTA [Suspect]
     Active Substance: VENETOCLAX
     Dosage: DAYS 7-14
     Route: 048
     Dates: start: 201710
  4. VENCLEXTA [Suspect]
     Active Substance: VENETOCLAX
     Route: 048
     Dates: start: 201710
  5. VENCLEXTA [Suspect]
     Active Substance: VENETOCLAX
     Dosage: DAYS 3-4
     Route: 048
     Dates: start: 201710

REACTIONS (2)
  - Renal failure [Not Recovered/Not Resolved]
  - Loss of consciousness [Not Recovered/Not Resolved]

NARRATIVE: CASE EVENT DATE: 20171014
